FAERS Safety Report 6133313-6 (Version None)
Quarter: 2009Q1

REPORT INFORMATION
  Report Type: 
  Country: None (occurrence: None)
  Receive Date: 20090324
  Receipt Date: 20090324
  Transmission Date: 20090719
  Serious: No
  Sender: FDA-Public Use
  Company Number: None

PATIENT
  Age: 73 Year
  Sex: Male

DRUGS (1)
  1. DILTIAZEM [Suspect]
     Dosage: 1 CAPSULE DAILY

REACTIONS (2)
  - ATRIAL FIBRILLATION [None]
  - PRODUCT QUALITY ISSUE [None]
